FAERS Safety Report 9287789 (Version 1)
Quarter: 2013Q2

REPORT INFORMATION
  Report Type: Spontaneous
  Country: US (occurrence: US)
  Receive Date: 20130514
  Receipt Date: 20130514
  Transmission Date: 20140414
  Serious: No
  Sender: FDA-Public Use
  Company Number: US-PFIZER INC-2013145887

PATIENT
  Age: 66 Year
  Sex: Female
  Weight: 65.76 kg

DRUGS (2)
  1. XELJANZ [Suspect]
     Indication: RHEUMATOID ARTHRITIS
     Dosage: 5 MG, 2X/DAY
     Route: 048
     Dates: end: 201305
  2. XANAX [Concomitant]
     Dosage: UNK

REACTIONS (5)
  - Renal pain [Unknown]
  - Bladder pain [Unknown]
  - Bladder disorder [Unknown]
  - Urinary incontinence [Unknown]
  - Abdominal pain upper [Unknown]
